FAERS Safety Report 4698215-0 (Version None)
Quarter: 2005Q2

REPORT INFORMATION
  Report Type: 
  Country: None (occurrence: None)
  Receive Date: 20050623
  Receipt Date: 20050616
  Transmission Date: 20051028
  Serious: Yes (Other)
  Sender: FDA-Public Use
  Company Number: JP-JNJFOC-20050605540

PATIENT
  Age: 50 Year
  Sex: Male

DRUGS (5)
  1. RISPERDAL [Suspect]
     Indication: DRUG USE FOR UNKNOWN INDICATION
     Route: 049
  2. LEVOMEPROMAZINE MALEATE [Suspect]
     Indication: DRUG USE FOR UNKNOWN INDICATION
     Route: 049
  3. ZOTEPINE [Concomitant]
     Route: 049
  4. NITRAZEPAM [Concomitant]
     Route: 049
  5. TERAZOSIN HYDROCHLORIDE [Concomitant]
     Route: 049

REACTIONS (2)
  - ANAEMIA [None]
  - RENAL FAILURE ACUTE [None]
